FAERS Safety Report 7033386-2 (Version None)
Quarter: 2010Q4

REPORT INFORMATION
  Report Type: 
  Country: None (occurrence: None)
  Receive Date: 20101007
  Receipt Date: 20100928
  Transmission Date: 20110411
  Serious: Yes (Other)
  Sender: FDA-Public Use
  Company Number: US-CELGENEUS-163-20785-10091604

PATIENT
  Sex: Female

DRUGS (2)
  1. THALOMID [Suspect]
     Indication: SYSTEMIC LUPUS ERYTHEMATOSUS
     Route: 048
     Dates: start: 20100802, end: 20100818
  2. THALOMID [Suspect]
     Route: 048
     Dates: start: 20100818, end: 20100822

REACTIONS (4)
  - CHILLS [None]
  - DIZZINESS [None]
  - MUSCULAR WEAKNESS [None]
  - PYREXIA [None]
